FAERS Safety Report 22797141 (Version 5)
Quarter: 2023Q4

REPORT INFORMATION
  Report Type: Spontaneous
  Country: JP (occurrence: JP)
  Receive Date: 20230808
  Receipt Date: 20231004
  Transmission Date: 20240109
  Serious: Yes (Death, Hospitalization, Other)
  Sender: FDA-Public Use
  Company Number: JP-ONO-2023JP005494

PATIENT
  Age: 68 Year
  Sex: Male
  Weight: 79.8 kg

DRUGS (8)
  1. YERVOY [Suspect]
     Active Substance: IPILIMUMAB
     Indication: Metastatic renal cell carcinoma
     Dosage: 4 TIMES
     Route: 041
     Dates: start: 20210316, end: 20210531
  2. OPDIVO [Suspect]
     Active Substance: NIVOLUMAB
     Indication: Metastatic renal cell carcinoma
     Dosage: 240 UNITS NOT SPECIFIED, 5 TIMES
     Route: 041
     Dates: start: 20210316, end: 20210621
  3. OPDIVO [Suspect]
     Active Substance: NIVOLUMAB
     Dosage: 480 UNITS NOT SPECIFIED, 1 TIME
     Route: 041
     Dates: start: 20210712, end: 20210712
  4. OPDIVO [Suspect]
     Active Substance: NIVOLUMAB
     Dosage: 240 UNITS NOT SPECIFIED, 5 TIMES
     Route: 041
     Dates: start: 20210812, end: 20211111
  5. OPDIVO [Suspect]
     Active Substance: NIVOLUMAB
     Dosage: 480 UNITS NOT SPECIFIED, 4 TIMES
     Route: 041
     Dates: start: 20211125, end: 20220217
  6. CABOZANTINIB [Suspect]
     Active Substance: CABOZANTINIB
     Indication: Metastatic renal cell carcinoma
     Dosage: 60 UNITS NOT SPECIFIED
     Route: 048
     Dates: start: 20220908, end: 20221111
  7. AXITINIB [Suspect]
     Active Substance: AXITINIB
     Indication: Metastatic renal cell carcinoma
     Dosage: 10 UNITS NOT SPECIFIED
     Route: 048
     Dates: start: 20221201, end: 20230104
  8. AXITINIB [Suspect]
     Active Substance: AXITINIB
     Dosage: 10 UNITS NOT SPECIFIED
     Route: 048
     Dates: start: 20230130, end: 20230301

REACTIONS (4)
  - Interstitial lung disease [Fatal]
  - Malignant neoplasm progression [Fatal]
  - Decreased appetite [Recovered/Resolved]
  - Diarrhoea [Recovered/Resolved]

NARRATIVE: CASE EVENT DATE: 20220317
